FAERS Safety Report 8899182 (Version 2)
Quarter: 2012Q4

REPORT INFORMATION
  Report Type: 
  Country: DE (occurrence: DE)
  Receive Date: 20121109
  Receipt Date: 20121129
  Transmission Date: 20130627
  Serious: Yes (Other)
  Sender: FDA-Public Use
  Company Number: CHPA2012DE023391

PATIENT
  Age: 51 Year
  Sex: Female
  Weight: 72 kg

DRUGS (1)
  1. NICOTINELL [Suspect]
     Indication: SMOKING CESSATION THERAPY
     Dosage: 1 DF, QD
     Route: 062
     Dates: start: 20121026, end: 20121107

REACTIONS (3)
  - Rash generalised [Recovered/Resolved]
  - Pruritus [Recovered/Resolved]
  - Pruritus generalised [None]
